FAERS Safety Report 10224815 (Version 8)
Quarter: 2014Q3

REPORT INFORMATION
  Report Type: Spontaneous
  Country: US (occurrence: US)
  Receive Date: 20140609
  Receipt Date: 20140825
  Transmission Date: 20150326
  Serious: Yes (Hospitalization)
  Sender: FDA-Public Use
  Company Number: US-GLAXOSMITHKLINE-A1071092A

PATIENT
  Age: 59 Year
  Sex: Female

DRUGS (3)
  1. LETAIRIS [Concomitant]
     Active Substance: AMBRISENTAN
  2. FLOLAN [Suspect]
     Active Substance: EPOPROSTENOL SODIUM
     Indication: COR PULMONALE CHRONIC
     Dosage: 25.2NGKM CONTINUOUS
     Route: 042
     Dates: start: 20140314
  3. ADCIRCA [Concomitant]
     Active Substance: TADALAFIL

REACTIONS (10)
  - Rash [Recovered/Resolved]
  - Pneumonia [Not Recovered/Not Resolved]
  - Medical device complication [Unknown]
  - Pruritus [Recovered/Resolved]
  - Central venous catheterisation [Unknown]
  - Abdominal pain upper [Not Recovered/Not Resolved]
  - Catheter site haemorrhage [Unknown]
  - Diarrhoea [Not Recovered/Not Resolved]
  - Clostridium difficile infection [Not Recovered/Not Resolved]
  - Catheterisation venous [Unknown]

NARRATIVE: CASE EVENT DATE: 2014
